FAERS Safety Report 18053882 (Version 1)
Quarter: 2020Q3

REPORT INFORMATION
  Report Type: Spontaneous
  Country: US (occurrence: US)
  Receive Date: 20200721
  Receipt Date: 20200721
  Transmission Date: 20201103
  Serious: No
  Sender: FDA-Public Use
  Company Number: None

PATIENT
  Sex: Female
  Weight: 65.77 kg

DRUGS (14)
  1. K2 [Concomitant]
     Active Substance: JWH-018
  2. MIR [Concomitant]
     Active Substance: MORPHINE SULFATE
  3. VITAMIN D3 [Concomitant]
     Active Substance: CHOLECALCIFEROL
  4. C [Concomitant]
  5. DYGL LICORICE MINTS [Concomitant]
  6. METHYYLPHENIDATE [Concomitant]
  7. COLACE [Concomitant]
     Active Substance: DOCUSATE SODIUM
  8. VITAMIN B12 [Concomitant]
     Active Substance: CYANOCOBALAMIN
  9. LEVOTHYROXINE. [Concomitant]
     Active Substance: LEVOTHYROXINE
  10. PEPSID COMPLETE [Concomitant]
  11. BACTRIM [Concomitant]
     Active Substance: SULFAMETHOXAZOLE\TRIMETHOPRIM
  12. SULFAMETHOXAZOLE\TRIMETHOPRIM [Suspect]
     Active Substance: SULFAMETHOXAZOLE\TRIMETHOPRIM
     Indication: URINARY TRACT INFECTION
     Dosage: ?          OTHER STRENGTH:800?160 SMZ TMP;QUANTITY:30 DF DOSAGE FORM;?
     Route: 048
     Dates: start: 20191221, end: 20200625
  13. MAGNESIUM [Concomitant]
     Active Substance: MAGNESIUM
  14. MALATE [Concomitant]

REACTIONS (9)
  - Pruritus [None]
  - Oral discomfort [None]
  - Oral pain [None]
  - Erythema [None]
  - Tongue discomfort [None]
  - Pathogen resistance [None]
  - Plicated tongue [None]
  - Pelvic floor dysfunction [None]
  - Frequent bowel movements [None]
